FAERS Safety Report 9183157 (Version 1)
Quarter: 2012Q4

REPORT INFORMATION
  Report Type: 
  Country: BR (occurrence: BR)
  Receive Date: 20121030
  Receipt Date: 20121030
  Transmission Date: 20130627
  Serious: Yes (Other)
  Sender: FDA-Public Use
  Company Number: BR-AMGEN-BRASP2012068048

PATIENT
  Age: 67 Year
  Sex: Female
  Weight: 72 kg

DRUGS (8)
  1. ENBREL [Suspect]
     Indication: RHEUMATOID ARTHRITIS
     Dosage: 50 mg, once weekly
     Route: 058
     Dates: start: 200910, end: 20120831
  2. METHOTREXATE [Concomitant]
     Indication: ARTHRITIS
     Dosage: UNK
  3. FOLIC ACID [Concomitant]
     Indication: ARTHRITIS
     Dosage: UNK
  4. PARACETAMOL [Concomitant]
     Indication: ARTHRITIS
     Dosage: 2 tablets per day
  5. PREDNISONE [Concomitant]
     Indication: ARTHRITIS
     Dosage: 5 mg, UNK
  6. AMITRIPTYLINE [Concomitant]
     Indication: ARTHRITIS
     Dosage: 25 mg per day
  7. VITAMIN D3 [Concomitant]
     Indication: ARTHRITIS
     Dosage: UNK
  8. CALCIUM [Concomitant]
     Indication: ARTHRITIS
     Dosage: UNK

REACTIONS (3)
  - Device failure [Unknown]
  - Gait disturbance [Unknown]
  - Arthralgia [Unknown]
